FAERS Safety Report 23910872 (Version 2)
Quarter: 2025Q1

REPORT INFORMATION
  Report Type: Spontaneous
  Country: US (occurrence: US)
  Receive Date: 20240528
  Receipt Date: 20250227
  Transmission Date: 20250408
  Serious: No
  Sender: AVADEL CNS PHARMACEUTICALS, LLC
  Company Number: US-AVADEL CNS PHARMACEUTICALS, LLC-2024AVA00481

PATIENT
  Sex: Female
  Weight: 56.689 kg

DRUGS (4)
  1. LUMRYZ [Suspect]
     Active Substance: SODIUM OXYBATE
     Indication: Narcolepsy
     Dosage: 9 G, ONCE NIGHTLY
     Route: 048
     Dates: start: 202311
  2. LUMRYZ [Suspect]
     Active Substance: SODIUM OXYBATE
     Indication: Cataplexy
  3. MAGNESIUM [Concomitant]
     Active Substance: MAGNESIUM
     Dosage: 125 MG, ^PROBABLY EVERY OTHER DAY^
  4. ZINC [Concomitant]
     Active Substance: ZINC
     Dosage: 50 MG, 1X/WEEK

REACTIONS (3)
  - Fatigue [Not Recovered/Not Resolved]
  - Enuresis [Not Recovered/Not Resolved]
  - Product dose omission issue [Not Recovered/Not Resolved]
